FAERS Safety Report 7937059-0 (Version None)
Quarter: 2011Q4

REPORT INFORMATION
  Report Type: 
  Country: None (occurrence: None)
  Receive Date: 20111123
  Receipt Date: 20111031
  Transmission Date: 20120403
  Serious: Yes (Death)
  Sender: FDA-Public Use
  Company Number: US-ACTELION-A-NJ2011-57297

PATIENT

DRUGS (4)
  1. EPOPROSTENOL SODIUM [Suspect]
     Indication: PULMONARY ARTERIAL HYPERTENSION
     Dosage: 87 NG/KG, PER MIN
     Route: 041
     Dates: start: 20101109, end: 20111031
  2. ASPIRIN [Concomitant]
  3. OXYGEN [Concomitant]
  4. SILDENAFIL [Concomitant]

REACTIONS (2)
  - DYSPNOEA [None]
  - DEATH [None]
